FAERS Safety Report 9417826 (Version 1)
Quarter: 2013Q3

REPORT INFORMATION
  Report Type: Spontaneous
  Country: CA (occurrence: CA)
  Receive Date: 20130724
  Receipt Date: 20130724
  Transmission Date: 20140515
  Serious: Yes (Other)
  Sender: FDA-Public Use
  Company Number: CA-009507513-1307CAN004663

PATIENT
  Sex: Male

DRUGS (3)
  1. VICTRELIS TRIPLE [Suspect]
     Indication: HEPATITIS C
     Dosage: 120 MICROGRAM, UNK
     Route: 058
     Dates: start: 201212, end: 201307
  2. VICTRELIS TRIPLE [Suspect]
     Dosage: 1000 MG, UNK
     Route: 048
     Dates: start: 201212, end: 201307
  3. VICTRELIS TRIPLE [Suspect]
     Dosage: 2400 MG, UNK
     Route: 048
     Dates: start: 201212, end: 201307

REACTIONS (2)
  - Neoplasm progression [Unknown]
  - Malignant dysphagia [Unknown]
